FAERS Safety Report 6630757-0 (Version None)
Quarter: 2010Q1

REPORT INFORMATION
  Report Type: 
  Country: None (occurrence: None)
  Receive Date: 20100311
  Receipt Date: 20100305
  Transmission Date: 20100710
  Serious: Yes (Death, Other)
  Sender: FDA-Public Use
  Company Number: US-TYCO HEALTHCARE/MALLINCKRODT-T200902367

PATIENT
  Sex: Male

DRUGS (10)
  1. OPTIMARK [Suspect]
     Indication: NUCLEAR MAGNETIC RESONANCE IMAGING
     Dosage: UNK
     Route: 042
  2. OPTIMARK [Suspect]
     Indication: ANGIOGRAM
  3. MAGNEVIST [Suspect]
     Indication: NUCLEAR MAGNETIC RESONANCE IMAGING
     Dosage: UNK
     Route: 042
  4. MAGNEVIST [Suspect]
     Indication: ANGIOGRAM
  5. OMNISCAN [Suspect]
     Indication: NUCLEAR MAGNETIC RESONANCE IMAGING
     Dosage: UNK
     Route: 042
  6. OMNISCAN [Suspect]
     Indication: ANGIOGRAM
  7. MULTIHANCE [Suspect]
     Indication: NUCLEAR MAGNETIC RESONANCE IMAGING
     Dosage: UNK
     Route: 042
  8. MULTIHANCE [Suspect]
     Indication: ANGIOGRAM
  9. PROHANCE [Suspect]
     Indication: NUCLEAR MAGNETIC RESONANCE IMAGING
     Dosage: UNK
     Route: 042
  10. PROHANCE [Suspect]
     Indication: ANGIOGRAM

REACTIONS (1)
  - NEPHROGENIC SYSTEMIC FIBROSIS [None]
